FAERS Safety Report 8408024-4 (Version None)
Quarter: 2012Q2

REPORT INFORMATION
  Report Type: 
  Country: None (occurrence: None)
  Receive Date: 20120604
  Receipt Date: 20120525
  Transmission Date: 20120825
  Serious: Yes (Hospitalization, Other)
  Sender: FDA-Public Use
  Company Number: US-MERCK-1203USA00877

PATIENT
  Age: 73 Year
  Sex: Female
  Weight: 73 kg

DRUGS (15)
  1. VITAMINS (UNSPECIFIED) [Concomitant]
     Route: 065
  2. FOSAMAX PLUS D [Suspect]
     Route: 048
     Dates: start: 20090901
  3. NORVASC [Concomitant]
     Indication: HYPERTENSION
     Route: 065
     Dates: start: 20100401
  4. FOSAMAX [Suspect]
     Indication: OSTEOPOROSIS
     Route: 048
     Dates: start: 20020201, end: 20080301
  5. CALCIUM CARBONATE [Concomitant]
     Route: 065
  6. ALENDRONATE SODIUM [Suspect]
     Route: 065
     Dates: start: 20080331, end: 20100421
  7. FOSAMAX [Suspect]
     Route: 048
     Dates: start: 20080301, end: 20100701
  8. IRON (UNSPECIFIED) [Concomitant]
     Route: 065
  9. POTASSIUM (UNSPECIFIED) [Concomitant]
     Route: 065
  10. ALENDRONATE SODIUM [Suspect]
     Indication: OSTEOPOROSIS
     Route: 065
     Dates: start: 20080331, end: 20100421
  11. ASCORBIC ACID [Concomitant]
     Route: 065
  12. VITAMIN D (UNSPECIFIED) [Concomitant]
     Route: 065
  13. FOLIC ACID [Concomitant]
     Route: 065
  14. HYDROCHLOROTHIAZIDE [Concomitant]
     Indication: HYPERTENSION
     Route: 048
     Dates: start: 19981201
  15. PRAVACHOL [Concomitant]
     Indication: HYPERLIPIDAEMIA
     Route: 065

REACTIONS (32)
  - LOW TURNOVER OSTEOPATHY [None]
  - LEUKOCYTOSIS [None]
  - URINARY INCONTINENCE [None]
  - HIATUS HERNIA [None]
  - GASTROOESOPHAGEAL REFLUX DISEASE [None]
  - ARTHRALGIA [None]
  - BLOOD PRESSURE DECREASED [None]
  - OEDEMA PERIPHERAL [None]
  - CARDIAC MURMUR [None]
  - BREAST FIBROSIS [None]
  - HAEMORRHOIDS [None]
  - OSTEOPENIA [None]
  - TOOTH DISORDER [None]
  - CONSTIPATION [None]
  - SKIN CANCER [None]
  - SKIN DISORDER [None]
  - INSOMNIA [None]
  - GAIT DISTURBANCE [None]
  - ANAEMIA POSTOPERATIVE [None]
  - GASTRITIS [None]
  - CELLULITIS [None]
  - HYPERCHROMIC ANAEMIA [None]
  - LIVER FUNCTION TEST ABNORMAL [None]
  - WEIGHT INCREASED [None]
  - URINARY TRACT INFECTION [None]
  - CATARACT [None]
  - FEMUR FRACTURE [None]
  - LIP NEOPLASM MALIGNANT STAGE UNSPECIFIED [None]
  - BLOOD ALKALINE PHOSPHATASE INCREASED [None]
  - BODY HEIGHT DECREASED [None]
  - TINEA INFECTION [None]
  - OSTEOARTHRITIS [None]
